FAERS Safety Report 5706747-9 (Version None)
Quarter: 2008Q2

REPORT INFORMATION
  Report Type: 
  Country: None (occurrence: None)
  Receive Date: 20080414
  Receipt Date: 20080414
  Transmission Date: 20081010
  Serious: Yes (Hospitalization)
  Sender: FDA-Public Use
  Company Number: None

PATIENT
  Sex: Female
  Weight: 62.28 kg

DRUGS (1)
  1. TEMOZOLOMIDE [Suspect]
     Dosage: 1050 MG

REACTIONS (2)
  - MASS [None]
  - PERIRECTAL ABSCESS [None]
